FAERS Safety Report 9732376 (Version 6)
Quarter: 2014Q1

REPORT INFORMATION
  Report Type: Spontaneous
  Country: US (occurrence: None)
  Receive Date: 20131203
  Receipt Date: 20140127
  Transmission Date: 20141002
  Serious: Yes (Other)
  Sender: FDA-Public Use
  Company Number: 2013SA123108

PATIENT
  Age: 49 Year
  Sex: Male
  Weight: 88.45 kg

DRUGS (3)
  1. ICY HOT MEDICATED NO MESS APPLICATOR [Suspect]
     Indication: LIGAMENT SPRAIN
     Dates: start: 20131116, end: 20131118
  2. ICY HOT MEDICATED NO MESS APPLICATOR [Suspect]
     Indication: MUSCULOSKELETAL PAIN
     Dates: start: 20131116, end: 20131118
  3. ICY HOT MEDICATED NO MESS APPLICATOR [Suspect]
     Dates: start: 20131116, end: 20131118

REACTIONS (7)
  - Skin discolouration [None]
  - Erythema [None]
  - Dermatitis contact [None]
  - Scar [None]
  - Feeling hot [None]
  - Pain of skin [None]
  - Pain [None]
